FAERS Safety Report 18182436 (Version 1)
Quarter: 2020Q3

REPORT INFORMATION
  Report Type: Spontaneous
  Country: KR (occurrence: KR)
  Receive Date: 20200821
  Receipt Date: 20200821
  Transmission Date: 20201103
  Serious: Yes (Death, Hospitalization)
  Sender: FDA-Public Use
  Company Number: KR-MYLANLABS-2020M1072839

PATIENT
  Age: 79 Year
  Sex: Male

DRUGS (6)
  1. GEMCITABINE. [Concomitant]
     Active Substance: GEMCITABINE
     Indication: NON-SMALL CELL LUNG CANCER METASTATIC
  2. GEMCITABINE. [Concomitant]
     Active Substance: GEMCITABINE
     Indication: NON-SMALL CELL LUNG CANCER STAGE IV
     Dosage: UNK, CYCLEFOUR CYCLES ADMINISTERED
     Route: 065
     Dates: start: 201902
  3. CARBOPLATIN. [Suspect]
     Active Substance: CARBOPLATIN
     Indication: NON-SMALL CELL LUNG CANCER STAGE IV
     Dosage: UNK, CYCLE FOUR CYCLES ADMINISTERED
     Route: 065
     Dates: start: 201902
  4. PEMBROLIZUMAB. [Suspect]
     Active Substance: PEMBROLIZUMAB
     Indication: NON-SMALL CELL LUNG CANCER METASTATIC
  5. PEMBROLIZUMAB. [Suspect]
     Active Substance: PEMBROLIZUMAB
     Indication: NON-SMALL CELL LUNG CANCER STAGE IV
     Dosage: 200 MILLIGRAM, CYCLETHREE CYCLES ADMINISTERED
     Route: 065
     Dates: start: 201904
  6. CARBOPLATIN. [Suspect]
     Active Substance: CARBOPLATIN
     Indication: NON-SMALL CELL LUNG CANCER METASTATIC

REACTIONS (3)
  - Upper respiratory tract infection [Fatal]
  - Acute myelomonocytic leukaemia [Fatal]
  - Acute respiratory distress syndrome [Fatal]

NARRATIVE: CASE EVENT DATE: 2019
